FAERS Safety Report 11377251 (Version 1)
Quarter: 2015Q3

REPORT INFORMATION
  Report Type: Spontaneous
  Country: US (occurrence: US)
  Receive Date: 20150811
  Receipt Date: 20150811
  Transmission Date: 20151125
  Serious: No
  Sender: FDA-Public Use
  Company Number: US-ELI_LILLY_AND_COMPANY-US200810007512

PATIENT
  Sex: Female

DRUGS (4)
  1. HUMULIN R [Suspect]
     Active Substance: INSULIN HUMAN
     Dosage: UNK, AS NEEDED
  2. AMARYL [Concomitant]
     Active Substance: GLIMEPIRIDE
     Dosage: 4 MG, DAILY (1/D)
  3. METFORMIN [Concomitant]
     Active Substance: METFORMIN HYDROCHLORIDE
     Dosage: 1000 MG, 2/D
  4. HUMULIN R [Suspect]
     Active Substance: INSULIN HUMAN
     Dosage: UNK, 4/D

REACTIONS (9)
  - Dizziness [Unknown]
  - Blood glucose decreased [Unknown]
  - Distractibility [Unknown]
  - Feeling abnormal [Unknown]
  - Tinnitus [Unknown]
  - Vomiting [Unknown]
  - Tremor [Unknown]
  - Hypoacusis [Unknown]
  - Abnormal sensation in eye [Unknown]
